FAERS Safety Report 6818188-1 (Version None)
Quarter: 2010Q3

REPORT INFORMATION
  Report Type: 
  Country: None (occurrence: None)
  Receive Date: 20100706
  Receipt Date: 20070512
  Transmission Date: 20110219
  Serious: Yes (Other)
  Sender: FDA-Public Use
  Company Number: US-PFIZER INC-2007016419

PATIENT
  Sex: Female

DRUGS (2)
  1. ZITHROMAX [Suspect]
     Indication: SINUSITIS
  2. AVELOX [Suspect]
     Indication: SINUSITIS

REACTIONS (1)
  - CLOSTRIDIAL INFECTION [None]
